FAERS Safety Report 7715814-X (Version None)
Quarter: 2011Q3

REPORT INFORMATION
  Report Type: 
  Country: None (occurrence: None)
  Receive Date: 20110829
  Receipt Date: 20110829
  Transmission Date: 20111222
  Serious: No
  Sender: FDA-Public Use
  Company Number: None

PATIENT
  Age: 31 Year
  Sex: Female
  Weight: 54.431 kg

DRUGS (1)
  1. KENALOG [Suspect]

REACTIONS (2)
  - MUSCLE ATROPHY [None]
  - INJECTION SITE REACTION [None]
